FAERS Safety Report 17113259 (Version 1)
Quarter: 2019Q4

REPORT INFORMATION
  Report Type: Spontaneous
  Country: IT (occurrence: IT)
  Receive Date: 20191204
  Receipt Date: 20191204
  Transmission Date: 20200122
  Serious: Yes (Other)
  Sender: FDA-Public Use
  Company Number: IT-BAXTER-2019BAX024281

PATIENT
  Age: 49 Year
  Sex: Female
  Weight: 73 kg

DRUGS (4)
  1. METHYLENE BLUE. [Suspect]
     Active Substance: METHYLENE BLUE
     Indication: PRODUCT USED FOR UNKNOWN INDICATION
     Route: 065
  2. UROMITEXAN 400 MG/ 4ML [Suspect]
     Active Substance: MESNA
     Indication: PROPHYLAXIS
     Route: 065
  3. HOLOXAN [Suspect]
     Active Substance: IFOSFAMIDE
     Indication: SARCOMA
     Dosage: 1 VIAL, ENDOVENOUS
     Route: 042
     Dates: start: 20191021, end: 20191022
  4. ETOPOSIDE TEVA [Suspect]
     Active Substance: ETOPOSIDE
     Indication: SARCOMA
     Dosage: ROUTE: ENDOVENOUS
     Route: 042
     Dates: start: 20191021, end: 20191022

REACTIONS (7)
  - Neutropenia [Recovering/Resolving]
  - Leukopenia [Recovering/Resolving]
  - Haematotoxicity [Recovering/Resolving]
  - Thrombocytopenia [Recovering/Resolving]
  - Renal failure [Recovering/Resolving]
  - Neurotoxicity [Recovering/Resolving]
  - Anaemia [Recovering/Resolving]

NARRATIVE: CASE EVENT DATE: 20191028
